FAERS Safety Report 8147950-0 (Version None)
Quarter: 2012Q1

REPORT INFORMATION
  Report Type: 
  Country: None (occurrence: None)
  Receive Date: 20120218
  Receipt Date: 20110330
  Transmission Date: 20120608
  Serious: No
  Sender: FDA-Public Use
  Company Number: US-ALLERGAN-1104472US

PATIENT
  Sex: Male

DRUGS (1)
  1. BOTULINUM TOXIN TYPE A [Suspect]
     Indication: EXCESSIVE EYE BLINKING
     Dosage: UNK
     Route: 030
     Dates: start: 20110318, end: 20110318

REACTIONS (1)
  - LAGOPHTHALMOS [None]
